FAERS Safety Report 9440518 (Version 1)
Quarter: 2013Q3

REPORT INFORMATION
  Report Type: Spontaneous
  Country: NP (occurrence: NP)
  Receive Date: 20130805
  Receipt Date: 20130805
  Transmission Date: 20140515
  Serious: Yes (Hospitalization)
  Sender: FDA-Public Use
  Company Number: NP-PFIZER INC-2013221157

PATIENT
  Age: 27 Year
  Sex: Male

DRUGS (12)
  1. DEXAMETHASONE SODIUM PHOSPHATE [Suspect]
     Indication: BRAIN OEDEMA
     Dosage: 4 MG, 3X/DAY
     Dates: start: 200904
  2. DEXAMETHASONE SODIUM PHOSPHATE [Suspect]
     Indication: PULMONARY OEDEMA
  3. DEXAMETHASONE SODIUM PHOSPHATE [Suspect]
     Indication: MOUNTAIN SICKNESS ACUTE
  4. ACETAZOLAMIDE [Suspect]
     Indication: BRAIN OEDEMA
     Dosage: 250 MG, 2X/DAY
     Dates: start: 200904
  5. ACETAZOLAMIDE [Suspect]
     Indication: PULMONARY OEDEMA
  6. ACETAZOLAMIDE [Suspect]
     Indication: MOUNTAIN SICKNESS ACUTE
  7. NIFEDIPINE [Suspect]
     Indication: MOUNTAIN SICKNESS ACUTE
     Dosage: 30 MG, DAILY
     Dates: start: 200904
  8. NIFEDIPINE [Suspect]
     Indication: BRAIN OEDEMA
  9. NIFEDIPINE [Suspect]
     Indication: PULMONARY OEDEMA
  10. DEXAMETHASONE [Concomitant]
     Indication: MOUNTAIN SICKNESS ACUTE
     Dosage: 1 MG, 2X/DAY
  11. DEXAMETHASONE [Concomitant]
     Indication: BRAIN OEDEMA
  12. DEXAMETHASONE [Concomitant]
     Indication: PULMONARY OEDEMA

REACTIONS (13)
  - Toxicity to various agents [Recovered/Resolved]
  - Consciousness fluctuating [Unknown]
  - Confusional state [Recovered/Resolved]
  - Upper gastrointestinal haemorrhage [Recovered/Resolved]
  - Osteonecrosis [Not Recovered/Not Resolved]
  - Anaemia [Recovered/Resolved]
  - Dermatitis [Recovering/Resolving]
  - Paraesthesia [Recovered/Resolved]
  - Arthralgia [Not Recovered/Not Resolved]
  - Panic attack [Not Recovered/Not Resolved]
  - Hallucination, auditory [Unknown]
  - Depression [Not Recovered/Not Resolved]
  - Post-traumatic stress disorder [Not Recovered/Not Resolved]
